FAERS Safety Report 8860306 (Version 1)
Quarter: 2012Q4

REPORT INFORMATION
  Report Type: 
  Country: US (occurrence: US)
  Receive Date: 20121025
  Receipt Date: 20121025
  Transmission Date: 20130627
  Serious: No
  Sender: FDA-Public Use
  Company Number: US-PFIZER INC-2012262472

PATIENT
  Age: 77 Year
  Sex: Female
  Weight: 54.88 kg

DRUGS (2)
  1. TOVIAZ [Suspect]
     Indication: HYPERTONIC BLADDER
     Dosage: 4 mg, daily
     Dates: start: 201210
  2. BUPROPION [Concomitant]
     Indication: DEPRESSION
     Dosage: 150 mg, daily

REACTIONS (1)
  - Fatigue [Not Recovered/Not Resolved]
